FAERS Safety Report 11969240 (Version 2)
Quarter: 2016Q1

REPORT INFORMATION
  Report Type: Report from Study
  Country: JP (occurrence: JP)
  Receive Date: 20160128
  Receipt Date: 20160225
  Transmission Date: 20160526
  Serious: Yes (Other)
  Sender: FDA-Public Use
  Company Number: JP-ROCHE-1697415

PATIENT

DRUGS (3)
  1. BEVACIZUMAB [Suspect]
     Active Substance: BEVACIZUMAB
     Indication: COLORECTAL CANCER METASTATIC
     Dosage: OVER 30- TO 90-MIN
     Route: 042
  2. IRINOTECAN [Suspect]
     Active Substance: IRINOTECAN
     Indication: COLORECTAL CANCER METASTATIC
     Dosage: OVER 90-MIN
     Route: 042
  3. TS-1 [Suspect]
     Active Substance: GIMERACIL\OTERACIL\TEGAFUR
     Indication: COLORECTAL CANCER METASTATIC
     Dosage: FOR 14 CONSECUTIVE DAYS AT A DOSE THAT DID NOT EXCEED 40 MG/M2 BASED ON BSA
     Route: 048

REACTIONS (13)
  - Stomatitis [Unknown]
  - Nausea [Unknown]
  - Malaise [Unknown]
  - Fatigue [Unknown]
  - Diarrhoea [Unknown]
  - Decreased appetite [Unknown]
  - Hypertension [Unknown]
  - Embolism [Unknown]
  - Febrile neutropenia [Unknown]
  - Anaemia [Unknown]
  - Leukaemia [Unknown]
  - Thrombocytopenia [Unknown]
  - Neutropenia [Unknown]
